FAERS Safety Report 19051061 (Version 1)
Quarter: 2021Q1

REPORT INFORMATION
  Report Type: Spontaneous
  Country: US (occurrence: US)
  Receive Date: 20210324
  Receipt Date: 20210324
  Transmission Date: 20210420
  Serious: No
  Sender: FDA-Public Use
  Company Number: US-ALLERGAN-2025236US

PATIENT
  Sex: Female
  Weight: 67.13 kg

DRUGS (3)
  1. ASACOL [Suspect]
     Active Substance: MESALAMINE
     Dosage: DAILY
     Route: 048
     Dates: start: 1997, end: 1997
  2. SULFASALAZINE. [Concomitant]
     Active Substance: SULFASALAZINE
     Indication: CROHN^S DISEASE
     Dosage: 500 MG, 4 IN THE MORNING AND 4 IN THE EVENING
     Route: 048
     Dates: start: 1985
  3. ASACOL [Suspect]
     Active Substance: MESALAMINE
     Indication: CROHN^S DISEASE
     Dosage: DAILY
     Route: 048
     Dates: start: 2008, end: 2008

REACTIONS (1)
  - Alopecia [Recovered/Resolved]

NARRATIVE: CASE EVENT DATE: 1997
